FAERS Safety Report 9493274 (Version 3)
Quarter: 2013Q3

REPORT INFORMATION
  Report Type: Report from Study
  Country: AU (occurrence: AU)
  Receive Date: 20130902
  Receipt Date: 20130913
  Transmission Date: 20140515
  Serious: Yes (Hospitalization, Other)
  Sender: FDA-Public Use
  Company Number: PHHY2013AU090405

PATIENT
  Age: 77 Year
  Sex: Female
  Weight: 52 kg

DRUGS (10)
  1. ACLASTA [Suspect]
     Indication: OSTEOPOROSIS
     Dosage: 5 MG
     Route: 042
     Dates: start: 20100731
  2. ACLASTA [Suspect]
     Dosage: 5 MG
     Route: 042
     Dates: start: 20110813
  3. ACLASTA [Suspect]
     Dosage: 5 MG
     Route: 042
     Dates: start: 20120811
  4. DIAMICRON MR [Concomitant]
     Indication: DIABETES MELLITUS
     Dosage: 60 MG, BID
     Route: 048
     Dates: start: 2000
  5. GLUCOPHAGE [Concomitant]
     Indication: DIABETES MELLITUS
     Dosage: 500 MG, TID
     Dates: start: 2000
  6. LIPITOR [Concomitant]
     Indication: LIPIDS INCREASED
     Dosage: 20 MG, BID
     Dates: start: 2000
  7. RENITEC [Concomitant]
     Indication: HYPERTENSION
     Dosage: 20 MG, DAILY
     Route: 048
     Dates: start: 2000
  8. ADALAT [Concomitant]
     Indication: HYPERTENSION
     Dosage: 20 MG, BID
     Dates: start: 2000
  9. ANTIHYPERTENSIVE DRUGS [Concomitant]
     Dosage: UNK
  10. PERSANTIN - SLOW RELEASE [Concomitant]
     Dosage: UNK

REACTIONS (6)
  - Cerebrovascular accident [Recovered/Resolved]
  - Haemorrhagic stroke [Unknown]
  - Hypokinesia [Unknown]
  - Disorientation [Unknown]
  - Aphasia [Unknown]
  - Malaise [Unknown]
